FAERS Safety Report 8167208-3 (Version None)
Quarter: 2012Q1

REPORT INFORMATION
  Report Type: 
  Country: None (occurrence: None)
  Receive Date: 20120221
  Receipt Date: 20120210
  Transmission Date: 20120608
  Serious: Yes (Other)
  Sender: FDA-Public Use
  Company Number: 2012MA001995

PATIENT
  Age: 78 Year
  Sex: Female

DRUGS (6)
  1. SERTRALINE HYDROCHLORIDE [Suspect]
     Indication: DEPRESSION
     Dosage: 50 MG;PO
     Route: 048
     Dates: start: 20111230, end: 20120113
  2. ZOPICLONE [Concomitant]
  3. SIMVASTATIN [Concomitant]
  4. LOPERAMIDE HCL [Concomitant]
  5. PREGABALIN [Concomitant]
  6. COLECALCIFEROL [Concomitant]

REACTIONS (3)
  - LIP BLISTER [None]
  - OROPHARYNGEAL BLISTERING [None]
  - ERYTHEMA MULTIFORME [None]
